FAERS Safety Report 5018302-7 (Version None)
Quarter: 2006Q2

REPORT INFORMATION
  Report Type: 
  Country: None (occurrence: None)
  Receive Date: 20060530
  Receipt Date: 20060523
  Transmission Date: 20061013
  Serious: Yes (Other)
  Sender: FDA-Public Use
  Company Number: 2006-05-0753

PATIENT
  Sex: Male

DRUGS (3)
  1. AERIUS TABLETS (DESLORATADINE) [Suspect]
     Indication: HYPERSENSITIVITY
     Dosage: ORAL
     Route: 048
     Dates: start: 20060505
  2. CLOTRIMAZOLE [Concomitant]
  3. TACROLIMUS OINTMENT [Concomitant]

REACTIONS (4)
  - ASTHMA [None]
  - DYSPNOEA [None]
  - SYMPTOM MASKED [None]
  - THROAT TIGHTNESS [None]
